FAERS Safety Report 8485727-7 (Version None)
Quarter: 2012Q3

REPORT INFORMATION
  Report Type: 
  Country: None (occurrence: None)
  Receive Date: 20120703
  Receipt Date: 20120621
  Transmission Date: 20120928
  Serious: Yes (Hospitalization)
  Sender: FDA-Public Use
  Company Number: DE-ROCHE-1078734

PATIENT
  Sex: Female
  Weight: 79 kg

DRUGS (5)
  1. HERCEPTIN [Suspect]
     Indication: BREAST CANCER
     Dosage: LAST DOSE PRIOR TO SAE ON 08/JUN/2012
     Route: 042
     Dates: start: 20120412
  2. PACLITAXEL [Suspect]
     Indication: BREAST CANCER
     Dosage: LAST DOSE PRIOR TO SAE ON 08/JUN/2012
     Route: 042
     Dates: start: 20120412
  3. HERCEPTIN [Suspect]
     Dosage: 483MG
     Route: 042
  4. DOXORUBICIN HCL [Suspect]
     Indication: BREAST CANCER
     Dosage: LAST DOSE PRIOR TO SAE ON 08/JUN/2012
     Route: 042
     Dates: start: 20120412
  5. LAPATINIB [Suspect]
     Indication: BREAST CANCER
     Route: 048
     Dates: start: 20120412

REACTIONS (1)
  - PNEUMONIA [None]
